FAERS Safety Report 21757636 (Version 1)
Quarter: 2022Q4

REPORT INFORMATION
  Report Type: Report from Study
  Country: US (occurrence: US)
  Receive Date: 20221221
  Receipt Date: 20221221
  Transmission Date: 20230113
  Serious: No
  Sender: FDA-Public Use
  Company Number: US-ABBVIE-4244100

PATIENT
  Age: 60 Year
  Sex: Male

DRUGS (5)
  1. VENCLEXTA [Suspect]
     Active Substance: VENETOCLAX
     Indication: Acute myeloid leukaemia
     Route: 048
     Dates: start: 20221219
  2. FENOFIBRATE [Concomitant]
     Active Substance: FENOFIBRATE
     Indication: Product used for unknown indication
  3. Pantoprazole Sodium Oral Tablet 40 MG [Concomitant]
     Indication: Product used for unknown indication
  4. Losartan Potassium Oral Tablet 50 MG [Concomitant]
     Indication: Product used for unknown indication
  5. Allopurinol Oral Tablet 300 MG [Concomitant]
     Indication: Product used for unknown indication

REACTIONS (1)
  - Nausea [Unknown]

NARRATIVE: CASE EVENT DATE: 20221219
